FAERS Safety Report 8545189-8 (Version None)
Quarter: 2012Q3

REPORT INFORMATION
  Report Type: 
  Country: None (occurrence: None)
  Receive Date: 20120727
  Receipt Date: 20120718
  Transmission Date: 20120928
  Serious: Yes (Hospitalization)
  Sender: FDA-Public Use
  Company Number: FR-ASTRAZENECA-2012SE48693

PATIENT
  Age: 24710 Day
  Sex: Female
  Weight: 56 kg

DRUGS (20)
  1. LANTUS [Suspect]
     Dates: start: 20120619, end: 20120628
  2. AMIKACIN [Suspect]
     Route: 042
     Dates: start: 20120616, end: 20120622
  3. CEFAZOLIN [Concomitant]
     Dates: start: 20120611, end: 20120611
  4. MEROPENEM [Suspect]
     Route: 042
     Dates: start: 20120619, end: 20120625
  5. CEFAZOLIN [Concomitant]
     Dates: start: 20120607, end: 20120607
  6. ATORVASTATIN [Concomitant]
  7. TENORMIN [Concomitant]
  8. LASIX [Suspect]
     Dates: start: 20120617, end: 20120703
  9. METRONIDAZOLE [Concomitant]
     Dates: start: 20120618, end: 20120618
  10. ASPIRIN [Concomitant]
  11. IOMERON-150 [Suspect]
     Dosage: 350 MG/ML, ONCE/SINGLE ADMINISTRATION
     Route: 042
     Dates: start: 20120709, end: 20120709
  12. ALBUMIN (HUMAN) [Concomitant]
     Dates: start: 20120619, end: 20120619
  13. ZANIDIPE [Concomitant]
  14. METFORMIN HCL [Concomitant]
  15. IOMERON-150 [Suspect]
     Dosage: 350 MG/ML, ONCE/SINGLE ADMINISTRATION
     Route: 042
     Dates: start: 20120702, end: 20120702
  16. ALBUMIN (HUMAN) [Concomitant]
     Dates: start: 20120620, end: 20120620
  17. IOMERON-150 [Suspect]
     Dosage: 350 MG/ML, ONCE/SINGLE ADMINISTRATION
     Route: 042
     Dates: start: 20120616, end: 20120616
  18. IOMERON-150 [Suspect]
     Dosage: 350 MG/ML, ONCE/SINGLE ADMINISTRATION
     Route: 042
     Dates: start: 20120626, end: 20120626
  19. CEFEPIME [Concomitant]
     Dates: start: 20120616, end: 20120618
  20. METRONIDAZOLE [Concomitant]
     Dates: start: 20120617, end: 20120617

REACTIONS (1)
  - TOXIC SKIN ERUPTION [None]
